FAERS Safety Report 4887321-3 (Version None)
Quarter: 2005Q4

REPORT INFORMATION
  Report Type: 
  Country: None (occurrence: None)
  Receive Date: 20051221
  Receipt Date: 20051017
  Transmission Date: 20060501
  Serious: No
  Sender: FDA-Public Use
  Company Number: US-YAMANOUCHI-YPA20050433

PATIENT
  Age: 59 Year
  Sex: Female

DRUGS (2)
  1. VESICARE [Suspect]
     Indication: HYPERTONIC BLADDER
     Dosage: 10 MG PO
     Route: 048
     Dates: start: 20050601
  2. HORMONE REPLACEMENT REPLACEMENT THERAPY [Concomitant]

REACTIONS (2)
  - MACULOPATHY [None]
  - VISION BLURRED [None]
